FAERS Safety Report 8682464 (Version 2)
Quarter: 2012Q4

REPORT INFORMATION
  Report Type: Report from Study
  Country: US (occurrence: US)
  Receive Date: 20120725
  Receipt Date: 20121219
  Transmission Date: 20130627
  Serious: Yes (Other)
  Sender: FDA-Public Use
  Company Number: US-JNJFOC-20120709470

PATIENT
  Age: 78 None
  Sex: Male
  Weight: 92.99 kg

DRUGS (22)
  1. XARELTO [Suspect]
     Indication: CEREBROVASCULAR ACCIDENT PROPHYLAXIS
     Route: 048
     Dates: start: 201206, end: 201207
  2. XARELTO [Suspect]
     Indication: CEREBROVASCULAR ACCIDENT PROPHYLAXIS
     Route: 048
     Dates: start: 20120717
  3. XARELTO [Suspect]
     Indication: ATRIAL FIBRILLATION
     Route: 048
     Dates: start: 20120717
  4. XARELTO [Suspect]
     Indication: ATRIAL FIBRILLATION
     Route: 048
     Dates: start: 201206, end: 201207
  5. XARELTO [Suspect]
     Indication: DEEP VEIN THROMBOSIS
     Route: 048
     Dates: start: 201206, end: 201207
  6. XARELTO [Suspect]
     Indication: DEEP VEIN THROMBOSIS
     Route: 048
     Dates: start: 20120717
  7. PRADAXA [Suspect]
     Indication: ATRIAL FIBRILLATION
     Route: 048
     Dates: start: 201107, end: 20120716
  8. PRADAXA [Suspect]
     Indication: DEEP VEIN THROMBOSIS
     Route: 048
     Dates: start: 201107, end: 20120716
  9. MIRALAX [Concomitant]
     Indication: GASTROINTESTINAL DISORDER
     Dates: start: 2012
  10. CRESTOR [Concomitant]
     Indication: CORONARY ARTERY DISEASE
  11. CRESTOR [Concomitant]
     Indication: BLOOD CHOLESTEROL
  12. FISH OIL [Concomitant]
     Route: 048
  13. METFORMIN [Concomitant]
     Indication: TYPE 2 DIABETES MELLITUS
     Route: 048
     Dates: end: 20120716
  14. METFORMIN [Concomitant]
     Indication: TYPE 2 DIABETES MELLITUS
     Route: 048
  15. LISINOPRIL [Concomitant]
     Route: 048
  16. ALLOPURINOL [Concomitant]
     Indication: GOUT
     Route: 048
  17. NITROGLYCERIN [Concomitant]
     Indication: ANGINA PECTORIS
  18. PRILOSEC [Concomitant]
     Indication: GASTRITIS
     Route: 048
     Dates: start: 201207
  19. BETAPACE [Concomitant]
     Indication: ATRIAL FIBRILLATION
     Route: 048
     Dates: start: 2012
  20. BETAPACE [Concomitant]
     Indication: HEART RATE IRREGULAR
     Route: 048
     Dates: start: 2012
  21. TRAMADOL [Concomitant]
     Indication: HEADACHE
     Route: 048
     Dates: start: 2010
  22. SILVER CENTRUM [Concomitant]
     Indication: VITAMIN SUPPLEMENTATION
     Route: 048

REACTIONS (9)
  - Angina pectoris [Recovered/Resolved]
  - Flatulence [Unknown]
  - Flatulence [Not Recovered/Not Resolved]
  - Inappropriate schedule of drug administration [Not Recovered/Not Resolved]
  - Abdominal distension [Not Recovered/Not Resolved]
  - Oropharyngeal pain [Recovering/Resolving]
  - Lung infection [Recovering/Resolving]
  - Feeling abnormal [Not Recovered/Not Resolved]
  - Functional gastrointestinal disorder [Not Recovered/Not Resolved]
